FAERS Safety Report 16240904 (Version 2)
Quarter: 2019Q2

REPORT INFORMATION
  Report Type: Spontaneous
  Country: US (occurrence: US)
  Receive Date: 20190425
  Receipt Date: 20190523
  Transmission Date: 20190711
  Serious: Yes (Other)
  Sender: FDA-Public Use
  Company Number: US-AKORN PHARMACEUTICALS-2019AKN00829

PATIENT
  Age: 20 Year
  Sex: Male
  Weight: 92.97 kg

DRUGS (1)
  1. MYORISAN [Suspect]
     Active Substance: ISOTRETINOIN
     Indication: ACNE
     Dosage: 30 MG, 2X/DAY
     Route: 048
     Dates: start: 20190329, end: 20190411

REACTIONS (16)
  - Mood altered [Recovering/Resolving]
  - Pain [Unknown]
  - Depression [Recovering/Resolving]
  - Anger [Recovering/Resolving]
  - Tearfulness [Recovering/Resolving]
  - Xerosis [Not Recovered/Not Resolved]
  - Anxiety [Recovering/Resolving]
  - Fatigue [Unknown]
  - Violence-related symptom [Recovering/Resolving]
  - Affect lability [Recovering/Resolving]
  - Suicidal ideation [Recovering/Resolving]
  - Skin lesion [Unknown]
  - Cheilitis [Not Recovered/Not Resolved]
  - Impaired healing [Unknown]
  - Flat affect [Recovering/Resolving]
  - Depressed level of consciousness [Recovering/Resolving]

NARRATIVE: CASE EVENT DATE: 2019
